FAERS Safety Report 4517270-1 (Version None)
Quarter: 2004Q4

REPORT INFORMATION
  Report Type: 
  Country: None (occurrence: None)
  Receive Date: 20041001
  Receipt Date: 20040625
  Transmission Date: 20050328
  Serious: Yes (Other)
  Sender: FDA-Public Use
  Company Number: PHEH2004US06925

PATIENT
  Sex: Male

DRUGS (4)
  1. LOPRESSOR [Suspect]
     Dosage: 25 MG, BID
  2. PREVACID [Concomitant]
  3. WARFARIN SODIUM [Concomitant]
  4. MILK OF MAGNESIA TAB [Concomitant]

REACTIONS (1)
  - HALLUCINATION [None]
